FAERS Safety Report 9344003 (Version 1)
Quarter: 2013Q2

REPORT INFORMATION
  Report Type: Spontaneous
  Country: GB (occurrence: None)
  Receive Date: 20130610
  Receipt Date: 20130610
  Transmission Date: 20140414
  Serious: Yes (Hospitalization)
  Sender: FDA-Public Use
  Company Number: 2013AP005696

PATIENT
  Age: 70 Year
  Sex: Male

DRUGS (16)
  1. PERINDOPRIL ERBUMINE [Suspect]
     Indication: PROPHYLAXIS
  2. ACIDEX [Concomitant]
  3. AMLODIPINE (AMLODIPINE) [Concomitant]
  4. PEPTAC  /01521901/ [Concomitant]
  5. INDAPAMIDE (INDAPAMIDE) [Suspect]
     Indication: PROPHYLAXIS
     Route: 048
  6. GABAPENTIN (GABAPENTIN) [Concomitant]
  7. GLYCERYL TRINITRATE (GLYCERYL TRINITRATE) [Concomitant]
  8. MESALAZINE (MESALAZINE) [Concomitant]
  9. PARACETAMOL (PARACETAMOL) [Concomitant]
  10. SALBUTAMOL (SALBUTAMOL) [Concomitant]
  11. SENNA [Concomitant]
  12. SYMBICORT [Concomitant]
  13. XYLOPROCT (XYLOPROCT) [Concomitant]
  14. MACROGOL 3350 (MACROGOL 3350) [Concomitant]
  15. POTASSIUM CHLORIDE (POTASSIUM CHLORIDE) [Concomitant]
  16. SODIUM CHLORIDE [Concomitant]

REACTIONS (5)
  - Confusional state [None]
  - Headache [None]
  - Hyponatraemia [None]
  - Malaise [None]
  - Convulsion [None]
